FAERS Safety Report 6717632-8 (Version None)
Quarter: 2010Q2

REPORT INFORMATION
  Report Type: 
  Country: None (occurrence: None)
  Receive Date: 20100503
  Receipt Date: 20100426
  Transmission Date: 20101027
  Serious: Yes (Other)
  Sender: FDA-Public Use
  Company Number: 010423

PATIENT
  Age: 37 Year
  Sex: Female
  Weight: 54 kg

DRUGS (4)
  1. KEPPRA [Suspect]
  2. TEGRETOL [Concomitant]
  3. ATIVAN [Concomitant]
  4. SEROQUEL [Concomitant]

REACTIONS (1)
  - CONVULSION [None]
